FAERS Safety Report 24576427 (Version 1)
Quarter: 2024Q4

REPORT INFORMATION
  Report Type: Spontaneous
  Country: US (occurrence: US)
  Receive Date: 20241104
  Receipt Date: 20241104
  Transmission Date: 20250114
  Serious: No
  Sender: Haleon PLC
  Company Number: US-HALEON-2206213

PATIENT
  Sex: Female

DRUGS (1)
  1. SENSODYNE EXTRA WHITENING [Suspect]
     Active Substance: POTASSIUM NITRATE\SODIUM FLUORIDE
     Indication: Product used for unknown indication
     Dosage: EXPDATE:20260331

REACTIONS (3)
  - Gingival bleeding [Not Recovered/Not Resolved]
  - Noninfective gingivitis [Not Recovered/Not Resolved]
  - Gingival discomfort [Not Recovered/Not Resolved]
